FAERS Safety Report 7950112-0 (Version None)
Quarter: 2011Q4

REPORT INFORMATION
  Report Type: 
  Country: None (occurrence: None)
  Receive Date: 20111130
  Receipt Date: 20111119
  Transmission Date: 20120403
  Serious: Yes (Other)
  Sender: FDA-Public Use
  Company Number: US-JNJFOC-20111109824

PATIENT
  Sex: Female
  Weight: 54.6 kg

DRUGS (6)
  1. REMICADE [Suspect]
     Indication: INFLAMMATORY BOWEL DISEASE
     Route: 042
     Dates: start: 20101230
  2. REMICADE [Suspect]
     Route: 042
     Dates: start: 20110923
  3. MESALAMINE [Concomitant]
     Route: 048
  4. BENADRYL [Concomitant]
     Indication: PREMEDICATION
     Route: 048
  5. ACETAMINOPHEN [Concomitant]
     Indication: PREMEDICATION
     Route: 048
  6. REMICADE [Suspect]
     Route: 042
     Dates: start: 20111118

REACTIONS (3)
  - ADMINISTRATION RELATED REACTION [None]
  - URTICARIA [None]
  - THROAT TIGHTNESS [None]
